FAERS Safety Report 7810274-2 (Version None)
Quarter: 2011Q4

REPORT INFORMATION
  Report Type: 
  Country: None (occurrence: None)
  Receive Date: 20111012
  Receipt Date: 20111005
  Transmission Date: 20120403
  Serious: Yes (Hospitalization, Other)
  Sender: FDA-Public Use
  Company Number: US-SANOFI-AVENTIS-2011SA066016

PATIENT
  Age: 79 Year
  Sex: Female

DRUGS (6)
  1. XANAX [Concomitant]
  2. DIGOXIN [Concomitant]
  3. PLAVIX [Suspect]
     Indication: CAROTID ARTERY OCCLUSION
     Route: 048
     Dates: start: 19990101
  4. GAS-X [Concomitant]
  5. AMLODIPINE BESYLATE [Concomitant]
  6. THYROID THERAPY [Concomitant]

REACTIONS (8)
  - WEIGHT DECREASED [None]
  - CONTUSION [None]
  - CEREBROVASCULAR ACCIDENT [None]
  - CATARACT [None]
  - TRANSIENT ISCHAEMIC ATTACK [None]
  - DYSPHONIA [None]
  - FALL [None]
  - PNEUMONIA [None]
